FAERS Safety Report 20022764 (Version 4)
Quarter: 2022Q1

REPORT INFORMATION
  Report Type: Spontaneous
  Country: CA (occurrence: CA)
  Receive Date: 20211102
  Receipt Date: 20220103
  Transmission Date: 20220423
  Serious: Yes (Other)
  Sender: FDA-Public Use
  Company Number: CA-CELLTRION INC.-2021CA012607

PATIENT

DRUGS (8)
  1. INFLECTRA [Suspect]
     Active Substance: INFLIXIMAB-DYYB
     Indication: Colitis ulcerative
     Dosage: 400 MG, INDUCTION DOSES WEEK 0, 2 AND 6 THEN EVERY 8 WEEKS
     Route: 042
     Dates: start: 20210813, end: 20210830
  2. INFLECTRA [Suspect]
     Active Substance: INFLIXIMAB-DYYB
     Dosage: 400 MG, INDUCTION DOSES WEEK 0, 2 AND 6 THEN EVERY 8 WEEKS
     Route: 042
     Dates: start: 20210830
  3. INFLECTRA [Suspect]
     Active Substance: INFLIXIMAB-DYYB
     Dosage: 700 MG INDUCTION WEEK 6 AND MAINTENANCE Q 8 WEEKS
     Route: 042
     Dates: start: 20210921
  4. INFLECTRA [Suspect]
     Active Substance: INFLIXIMAB-DYYB
     Dosage: 700 MG INDUCTION WEEK 6 AND MAINTENANCE Q 8 WEEKS
     Route: 042
     Dates: start: 20210921
  5. INFLECTRA [Suspect]
     Active Substance: INFLIXIMAB-DYYB
     Dosage: 700 MG INDUCTION WEEK 6 AND MAINTENANCE Q 8 WEEKS
     Route: 042
     Dates: start: 20210921
  6. INFLECTRA [Suspect]
     Active Substance: INFLIXIMAB-DYYB
     Dosage: 700 MG INDUCTION WEEK 6 AND MAINTENANCE Q 8 WEEKS
     Route: 042
     Dates: start: 20210927
  7. INFLECTRA [Suspect]
     Active Substance: INFLIXIMAB-DYYB
     Dosage: 10 MG/KG, EVERY 4 WEEK
     Route: 042
     Dates: start: 20211021, end: 20211021
  8. PREDNISONE [Concomitant]
     Active Substance: PREDNISONE
     Dosage: 1 DF

REACTIONS (4)
  - Condition aggravated [Not Recovered/Not Resolved]
  - Therapeutic response shortened [Not Recovered/Not Resolved]
  - Off label use [Unknown]
  - Off label use [Unknown]

NARRATIVE: CASE EVENT DATE: 20210101
